FAERS Safety Report 6702701-9 (Version None)
Quarter: 2010Q2

REPORT INFORMATION
  Report Type: 
  Country: None (occurrence: None)
  Receive Date: 20100428
  Receipt Date: 20100417
  Transmission Date: 20101027
  Serious: Yes (Hospitalization)
  Sender: FDA-Public Use
  Company Number: 568211

PATIENT
  Age: 21 Year
  Sex: Female

DRUGS (6)
  1. VANCOMYCIN HYDROCHLORIDE [Suspect]
     Dosage: INTRAVENOUS
     Route: 042
     Dates: start: 20090831, end: 20090831
  2. VANCOMYCIN HYDROCHLORIDE [Suspect]
     Dosage: INTRAVENOUS
     Route: 042
     Dates: start: 20100104, end: 20100104
  3. MIDAZOLAM HCL [Suspect]
     Dates: start: 20090831, end: 20090831
  4. LOVENOX [Suspect]
     Dosage: SUBCUTANEOUS
     Route: 058
     Dates: start: 20090831, end: 20090831
  5. MORPHINE SULFATE [Suspect]
     Dosage: ORAL
     Route: 048
     Dates: start: 20090831, end: 20090831
  6. (PARACETAMOL) [Suspect]
     Dates: start: 20090831, end: 20090831

REACTIONS (3)
  - ACUTE GENERALISED EXANTHEMATOUS PUSTULOSIS [None]
  - DRUG INTERACTION [None]
  - LYMPHADENOPATHY [None]
